FAERS Safety Report 5109146-6 (Version None)
Quarter: 2006Q3

REPORT INFORMATION
  Report Type: 
  Country: None (occurrence: None)
  Receive Date: 20060731
  Receipt Date: 20060506
  Transmission Date: 20061208
  Serious: No
  Sender: FDA-Public Use
  Company Number: 2006PV013406

PATIENT
  Age: 54 Year
  Sex: Male

DRUGS (2)
  1. BYETTA [Suspect]
     Indication: DRUG USE FOR UNKNOWN INDICATION
     Dosage: 5 MCG;QD;SC
     Route: 058
     Dates: start: 20060503
  2. AVANDAMET [Concomitant]

REACTIONS (4)
  - BLOOD GLUCOSE DECREASED [None]
  - BLOOD GLUCOSE INCREASED [None]
  - HEADACHE [None]
  - TREMOR [None]
